FAERS Safety Report 18595546 (Version 2)
Quarter: 2020Q4

REPORT INFORMATION
  Report Type: Spontaneous
  Country: US (occurrence: US)
  Receive Date: 20201209
  Receipt Date: 20201210
  Transmission Date: 20210114
  Serious: No
  Sender: FDA-Public Use
  Company Number: US-PFIZER INC-2020381532

PATIENT
  Age: 45 Year
  Sex: Male

DRUGS (2)
  1. XELJANZ [Suspect]
     Active Substance: TOFACITINIB CITRATE
     Indication: ALOPECIA UNIVERSALIS
     Dosage: 5 MG
     Dates: start: 201908
  2. XELJANZ [Suspect]
     Active Substance: TOFACITINIB CITRATE
     Indication: DERMATITIS ATOPIC
     Dosage: 15 MG, DAILY(1 TABLET (5 MG TOTAL) IN THE MORNING AND 2 TABLETS AT NIGHT)

REACTIONS (2)
  - Drug effective for unapproved indication [Unknown]
  - Off label use [Unknown]

NARRATIVE: CASE EVENT DATE: 2019
